FAERS Safety Report 5758295-8 (Version None)
Quarter: 2008Q2

REPORT INFORMATION
  Report Type: 
  Country: None (occurrence: None)
  Receive Date: 20080604
  Receipt Date: 20080526
  Transmission Date: 20081010
  Serious: Yes (Hospitalization, Other)
  Sender: FDA-Public Use
  Company Number: US-JNJFOC-20060500120

PATIENT
  Sex: Female
  Weight: 74.84 kg

DRUGS (3)
  1. ORTHO EVRA [Suspect]
     Indication: CONTRACEPTION
     Route: 062
  2. ORTHO-NOVUM [Suspect]
     Indication: DRUG USE FOR UNKNOWN INDICATION
  3. ADDERALL XR 10 [Concomitant]
     Indication: ATTENTION DEFICIT/HYPERACTIVITY DISORDER

REACTIONS (3)
  - CHEST PAIN [None]
  - PARAESTHESIA [None]
  - THROMBOPHLEBITIS SUPERFICIAL [None]
